FAERS Safety Report 8962117 (Version 2)
Quarter: 2013Q1

REPORT INFORMATION
  Report Type: Spontaneous
  Country: AR (occurrence: AR)
  Receive Date: 20121212
  Receipt Date: 20130111
  Transmission Date: 20140127
  Serious: Yes (Other)
  Sender: FDA-Public Use
  Company Number: AR-UCBSA-072732

PATIENT
  Age: 54 Year
  Sex: Male

DRUGS (2)
  1. KEPPRA [Suspect]
     Indication: PETIT MAL EPILEPSY
     Dosage: DAILY DOSE: 2000 MG( CONTINUED SAME DOSE FROM NEW LOT 57898)
     Route: 048
  2. TOPIRAMATE [Concomitant]
     Dosage: UNKNOWN DOSE

REACTIONS (5)
  - Simple partial seizures [Recovered/Resolved]
  - Gait disturbance [Recovered/Resolved]
  - Speech disorder [Recovered/Resolved]
  - Dyskinesia [Recovered/Resolved]
  - Drug ineffective [Recovered/Resolved]
